FAERS Safety Report 18541427 (Version 3)
Quarter: 2021Q1

REPORT INFORMATION
  Report Type: Spontaneous
  Country: US (occurrence: US)
  Receive Date: 20201124
  Receipt Date: 20210303
  Transmission Date: 20210419
  Serious: No
  Sender: FDA-Public Use
  Company Number: US-TEVA-2020-US-1852344

PATIENT
  Age: 57 Year
  Sex: Female

DRUGS (2)
  1. TREPROSTINIL MDV TEVA [Suspect]
     Active Substance: TREPROSTINIL
     Indication: PULMONARY ARTERIAL HYPERTENSION
     Dosage: 42NG/KG/MIN
     Route: 042
     Dates: start: 20190614
  2. TREPROSTINIL MDV TEVA [Suspect]
     Active Substance: TREPROSTINIL
     Dosage: 42NG/KG/MIN
     Route: 042
     Dates: start: 20210208

REACTIONS (11)
  - Arthralgia [Unknown]
  - Eye pain [Unknown]
  - Pain in extremity [Unknown]
  - Oropharyngeal pain [Unknown]
  - Nasal congestion [Unknown]
  - Diarrhoea [Unknown]
  - Pain in jaw [Unknown]
  - Nausea [Unknown]
  - Headache [Unknown]
  - Sinusitis [Unknown]
  - Drug monitoring procedure incorrectly performed [Unknown]

NARRATIVE: CASE EVENT DATE: 20210218
